FAERS Safety Report 9222268 (Version 3)
Quarter: 2013Q2

REPORT INFORMATION
  Report Type: Spontaneous
  Country: US (occurrence: US)
  Receive Date: 20130410
  Receipt Date: 20130617
  Transmission Date: 20140414
  Serious: Yes (Other)
  Sender: FDA-Public Use
  Company Number: US-NAPPMUNDI-USA-2013-0100845

PATIENT
  Age: 24 Year
  Sex: Female

DRUGS (3)
  1. OXYCONTIN TABLETS [Suspect]
     Indication: PAIN
     Dosage: 160 MG, BID
     Route: 048
     Dates: start: 2009
  2. ROXICODONE [Concomitant]
     Indication: BREAKTHROUGH PAIN
     Dosage: 15 MG, UNK
     Dates: start: 2009
  3. GABAPENTIN [Concomitant]
     Indication: NEURALGIA
     Dosage: 400 MG, UNK
     Dates: start: 2009

REACTIONS (1)
  - Complex regional pain syndrome [Not Recovered/Not Resolved]
